FAERS Safety Report 12912980 (Version 2)
Quarter: 2020Q2

REPORT INFORMATION
  Report Type: Spontaneous
  Country: TR (occurrence: TR)
  Receive Date: 20161104
  Receipt Date: 20200625
  Transmission Date: 20200713
  Serious: Yes (Hospitalization, Other)
  Sender: FDA-Public Use
  Company Number: TR-009507513-1611TUR002088

PATIENT
  Age: 28 Year
  Sex: Female

DRUGS (2)
  1. PUREGON [FOLLITROPIN BETA] [Suspect]
     Active Substance: FOLLITROPIN
     Indication: OVULATION INDUCTION
     Dosage: DAILY DOSAGE OF 75 IU
  2. OVITRELLE [Suspect]
     Active Substance: CHORIOGONADOTROPIN ALFA
     Indication: OVULATION INDUCTION
     Dosage: UNK

REACTIONS (2)
  - Hydrothorax [Recovered/Resolved]
  - Ovarian hyperstimulation syndrome [Unknown]
